FAERS Safety Report 20452421 (Version 1)
Quarter: 2022Q1

REPORT INFORMATION
  Report Type: Other
  Country: IT (occurrence: IT)
  Receive Date: 20220210
  Receipt Date: 20220210
  Transmission Date: 20220423
  Serious: Yes (Death, Hospitalization, Other)
  Sender: FDA-Public Use
  Company Number: IT-CELLTRION INC.-2021IT016557

PATIENT

DRUGS (20)
  1. RITUXIMAB [Suspect]
     Active Substance: RITUXIMAB
     Indication: Product used for unknown indication
     Dosage: 742.5 MG
     Route: 042
     Dates: start: 20211026
  2. RITUXIMAB [Suspect]
     Active Substance: RITUXIMAB
     Dosage: 742.5 MG (500 MG)
     Route: 042
     Dates: start: 20210901, end: 20211026
  3. RITUXIMAB [Suspect]
     Active Substance: RITUXIMAB
     Dosage: 742.5 MG (100 MG)
     Route: 042
     Dates: start: 20210901, end: 20211026
  4. COPANLISIB [Suspect]
     Active Substance: COPANLISIB
     Indication: Product used for unknown indication
     Dosage: 90 MG
     Route: 042
     Dates: start: 20210901, end: 20211102
  5. COPANLISIB [Suspect]
     Active Substance: COPANLISIB
     Dosage: 45 MG
     Route: 042
     Dates: start: 20211126
  6. COPANLISIB [Suspect]
     Active Substance: COPANLISIB
     Dosage: 60 MG
     Route: 042
     Dates: start: 20210901, end: 20210908
  7. BENDAMUSTINE [Suspect]
     Active Substance: BENDAMUSTINE
     Indication: Product used for unknown indication
     Dosage: 25 MG
     Route: 042
     Dates: start: 20210901, end: 20211027
  8. BENDAMUSTINE [Suspect]
     Active Substance: BENDAMUSTINE
     Dosage: 100 MG
     Route: 042
     Dates: start: 20210901, end: 20211027
  9. BENDAMUSTINE [Suspect]
     Active Substance: BENDAMUSTINE
     Dosage: 138.6 MG
     Route: 042
     Dates: start: 20210901, end: 20210902
  10. BENDAMUSTINE [Suspect]
     Active Substance: BENDAMUSTINE
     Dosage: 118 MG (100MG)
     Route: 042
     Dates: start: 20211026
  11. SILODOSIN [Concomitant]
     Active Substance: SILODOSIN
     Indication: Product used for unknown indication
     Dosage: UNK
     Route: 065
  12. OMEPRAZOLE [Concomitant]
     Active Substance: OMEPRAZOLE
     Indication: Product used for unknown indication
     Dosage: UNK
     Route: 065
  13. ALLOPURINOL [Concomitant]
     Active Substance: ALLOPURINOL
     Indication: Product used for unknown indication
     Dosage: UNK
     Route: 065
  14. FLECAINIDE [Concomitant]
     Active Substance: FLECAINIDE
     Indication: Product used for unknown indication
     Dosage: 100 MG, BID
     Route: 065
     Dates: start: 20210901
  15. ISAVUCONAZOLE [Concomitant]
     Active Substance: ISAVUCONAZOLE
     Indication: Product used for unknown indication
     Dosage: 100 MG, BID
     Route: 065
  16. FOLIC ACID [Concomitant]
     Active Substance: FOLIC ACID
     Indication: Product used for unknown indication
     Dosage: UNK
     Route: 065
  17. VALGANCICLOVIR [Concomitant]
     Active Substance: VALGANCICLOVIR
     Indication: Product used for unknown indication
     Dosage: 450 MG, BID
     Route: 065
  18. LAMIVUDINE [Concomitant]
     Active Substance: LAMIVUDINE
     Indication: Product used for unknown indication
     Dosage: UNK
     Route: 065
  19. URSODIOL [Concomitant]
     Active Substance: URSODIOL
     Indication: Product used for unknown indication
     Dosage: UNK
     Route: 065
  20. ALPRAZOLAM [Concomitant]
     Active Substance: ALPRAZOLAM
     Indication: Product used for unknown indication
     Dosage: 0.25 MG
     Route: 065

REACTIONS (12)
  - Cytomegalovirus infection [Fatal]
  - Abdominal pain upper [Fatal]
  - Atrial fibrillation [Fatal]
  - Asthenia [Fatal]
  - Dyspnoea [Fatal]
  - Hypotension [Fatal]
  - Nausea [Fatal]
  - Pyrexia [Fatal]
  - Septic shock [Fatal]
  - Staphylococcal infection [Fatal]
  - Chills [Recovered/Resolved]
  - Rash [Unknown]

NARRATIVE: CASE EVENT DATE: 20210910
